FAERS Safety Report 16765755 (Version 1)
Quarter: 2019Q3

REPORT INFORMATION
  Report Type: Spontaneous
  Country: US (occurrence: US)
  Receive Date: 20190903
  Receipt Date: 20190903
  Transmission Date: 20191005
  Serious: Yes (Death, Hospitalization, Other)
  Sender: FDA-Public Use
  Company Number: US-AUROBINDO-AUR-APL-2019-057574

PATIENT

DRUGS (1)
  1. VANCOMYCIN [Suspect]
     Active Substance: VANCOMYCIN
     Indication: STAPHYLOCOCCAL INFECTION
     Dosage: EVERY 2 WEEKS
     Route: 042

REACTIONS (9)
  - Cholecystitis [Fatal]
  - Cholelithiasis [Fatal]
  - White blood cell count increased [Fatal]
  - Pyrexia [Fatal]
  - Abdominal pain [Fatal]
  - Disease recurrence [Fatal]
  - Staphylococcal bacteraemia [Fatal]
  - Tachycardia [Fatal]
  - Decreased appetite [Fatal]
